FAERS Safety Report 12215617 (Version 1)
Quarter: 2016Q1

REPORT INFORMATION
  Report Type: Spontaneous
  Country: US (occurrence: US)
  Receive Date: 20160328
  Receipt Date: 20160328
  Transmission Date: 20160526
  Serious: Yes (Hospitalization)
  Sender: FDA-Public Use
  Company Number: US-SMITH AND NEPHEW, INC-2016SMT00256

PATIENT
  Age: 86 Year
  Sex: Male
  Weight: 88.89 kg

DRUGS (1)
  1. REGRANEX [Suspect]
     Active Substance: BECAPLERMIN
     Indication: WOUND
     Dosage: UNK UNK, 1X/DAY
     Route: 061
     Dates: start: 201602, end: 20160305

REACTIONS (5)
  - Drug effect incomplete [Unknown]
  - Wound infection [Recovering/Resolving]
  - Incorrect drug administration duration [Unknown]
  - Off label use [Unknown]
  - Pain in extremity [Recovered/Resolved]

NARRATIVE: CASE EVENT DATE: 2016
